FAERS Safety Report 18530727 (Version 7)
Quarter: 2021Q2

REPORT INFORMATION
  Report Type: Report from Study
  Country: US (occurrence: US)
  Receive Date: 20201121
  Receipt Date: 20210626
  Transmission Date: 20210717
  Serious: No
  Sender: FDA-Public Use
  Company Number: NVSC2020US304179

PATIENT
  Sex: Female

DRUGS (3)
  1. COSENTYX [Suspect]
     Active Substance: SECUKINUMAB
     Dosage: 300 MG, Q4W
     Route: 058
  2. COSENTYX [Suspect]
     Active Substance: SECUKINUMAB
     Dosage: 300 MG
     Route: 058
  3. COSENTYX [Suspect]
     Active Substance: SECUKINUMAB
     Indication: PSORIASIS
     Dosage: 300 MG, Q4W
     Route: 058

REACTIONS (8)
  - Drug ineffective [Unknown]
  - Seborrhoea [Not Recovered/Not Resolved]
  - Limb injury [Recovered/Resolved]
  - Arthralgia [Unknown]
  - Spondylitis [Not Recovered/Not Resolved]
  - Acne [Not Recovered/Not Resolved]
  - Back injury [Not Recovered/Not Resolved]
  - Dermatitis contact [Not Recovered/Not Resolved]
